FAERS Safety Report 5312267-6 (Version None)
Quarter: 2007Q2

REPORT INFORMATION
  Report Type: 
  Country: None (occurrence: None)
  Receive Date: 20070430
  Receipt Date: 20070319
  Transmission Date: 20071010
  Serious: No
  Sender: FDA-Public Use
  Company Number: 2006UW18741

PATIENT
  Age: 62 Year
  Sex: Female
  Weight: 55.3 kg

DRUGS (14)
  1. NEXIUM [Suspect]
     Indication: GASTROOESOPHAGEAL REFLUX DISEASE
     Route: 048
     Dates: start: 20061001
  2. NEXIUM [Suspect]
     Route: 048
     Dates: start: 20061001
  3. NEXIUM [Suspect]
     Dosage: EVERY OTHER DAY
     Route: 048
     Dates: start: 20061001
  4. NEXIUM [Suspect]
     Dosage: EVERY OTHER DAY
     Route: 048
     Dates: start: 20061001
  5. NEXIUM [Suspect]
     Dosage: EVERY THIRD DAY
     Route: 048
     Dates: start: 20061001
  6. NEXIUM [Suspect]
     Dosage: EVERY THIRD DAY
     Route: 048
     Dates: start: 20061001
  7. NADOLOL [Concomitant]
  8. MULTIVITAMIN LIQUID [Concomitant]
  9. GLUCOSAMINE CHONDROITIN [Concomitant]
  10. MSN [Concomitant]
  11. VAX-D TREATMENTS [Concomitant]
  12. CALCIUM CHLORIDE [Concomitant]
  13. MAGNESIUM SULFATE [Concomitant]
  14. CONDROITIN [Concomitant]

REACTIONS (9)
  - ABDOMINAL DISCOMFORT [None]
  - ABDOMINAL DISTENSION [None]
  - DYSGEUSIA [None]
  - DYSPEPSIA [None]
  - INCREASED APPETITE [None]
  - PALPITATIONS [None]
  - TACHYCARDIA [None]
  - VOMITING [None]
  - WEIGHT INCREASED [None]
